FAERS Safety Report 4385489-9 (Version None)
Quarter: 2004Q2

REPORT INFORMATION
  Report Type: 
  Country: None (occurrence: None)
  Receive Date: 20040622
  Receipt Date: 20040608
  Transmission Date: 20050107
  Serious: Yes (Death)
  Sender: FDA-Public Use
  Company Number: 2004-DE-03322UP

PATIENT
  Sex: Female

DRUGS (1)
  1. MIRAPEXIN (PRAMIPEXOLE DIHYDROCHLORIDE)(PRAMIPEXOLE) [Suspect]
     Indication: PARKINSON'S DISEASE
     Dosage: 3.75 MG (1.25 MG, 3 IN 1 D)
     Route: 048
     Dates: start: 19980101

REACTIONS (4)
  - GASTROINTESTINAL DISORDER [None]
  - GENERAL PHYSICAL HEALTH DETERIORATION [None]
  - PULMONARY EMBOLISM [None]
  - RESPIRATORY TRACT CONGESTION [None]
